FAERS Safety Report 12098684 (Version 1)
Quarter: 2016Q1

REPORT INFORMATION
  Report Type: Report from Study
  Country: US (occurrence: US)
  Receive Date: 20160222
  Receipt Date: 20160222
  Transmission Date: 20160526
  Serious: Yes (Other)
  Sender: FDA-Public Use
  Company Number: US-ROCHE-1712047

PATIENT

DRUGS (2)
  1. RITUXIMAB [Suspect]
     Active Substance: RITUXIMAB
     Indication: LYMPHOMA
     Dosage: DAYS 1, 8, 15 AND 22
     Route: 042
  2. BRENTUXIMAB VEDOTIN [Suspect]
     Active Substance: BRENTUXIMAB VEDOTIN
     Indication: LYMPHOMA
     Dosage: DAYS 1, 8, AND 15.
     Route: 065

REACTIONS (6)
  - Anaemia [Unknown]
  - Hyperbilirubinaemia [Unknown]
  - Neutropenia [Unknown]
  - Neuropathy peripheral [Unknown]
  - Lymphopenia [Unknown]
  - Aspartate aminotransferase increased [Unknown]
